FAERS Safety Report 4313853-2 (Version None)
Quarter: 2004Q1

REPORT INFORMATION
  Report Type: 
  Country: None (occurrence: None)
  Receive Date: 20040308
  Receipt Date: 20020516
  Transmission Date: 20041129
  Serious: Yes (Hospitalization, Disabling)
  Sender: FDA-Public Use
  Company Number: WAES 0205USA01980

PATIENT
  Age: 42 Year
  Sex: Female
  Weight: 133 kg

DRUGS (9)
  1. [THERAPY UNSPECIFIED] [Concomitant]
  2. ATENOLOL [Concomitant]
     Indication: HYPERTENSION
  3. LONOX [Concomitant]
  4. HYDROCORTISONE [Concomitant]
  5. ZESTRIL [Concomitant]
     Indication: HYPERTENSION
  6. PAXIL [Concomitant]
  7. VIOXX [Suspect]
     Indication: MYALGIA
     Route: 048
     Dates: start: 20000816, end: 20001006
  8. VIOXX [Suspect]
     Route: 048
     Dates: start: 20000714, end: 20000815
  9. TRAZODONE HYDROCHLORIDE [Concomitant]

REACTIONS (30)
  - ABDOMINAL PAIN UPPER [None]
  - ANXIETY [None]
  - ASTHENIA [None]
  - BACK INJURY [None]
  - BACK PAIN [None]
  - BALANCE DISORDER [None]
  - CARDIAC DISORDER [None]
  - CHEST PAIN [None]
  - COORDINATION ABNORMAL [None]
  - DECREASED APPETITE [None]
  - DEPRESSION [None]
  - DIABETES MELLITUS [None]
  - DIARRHOEA [None]
  - DIFFICULTY IN WALKING [None]
  - DIZZINESS POSTURAL [None]
  - EAR PAIN [None]
  - EYE MOVEMENT DISORDER [None]
  - FATIGUE [None]
  - FEELING JITTERY [None]
  - HAEMORRHAGE [None]
  - HYPERLIPIDAEMIA [None]
  - HYPERTENSION [None]
  - IRRITABLE BOWEL SYNDROME [None]
  - MYALGIA [None]
  - RENAL FAILURE [None]
  - SEPTIC SHOCK [None]
  - SLEEP APNOEA SYNDROME [None]
  - TREMOR [None]
  - VISION BLURRED [None]
  - VOMITING [None]
